FAERS Safety Report 8785681 (Version 1)
Quarter: 2012Q4

REPORT INFORMATION
  Report Type: Spontaneous
  Country: TR (occurrence: None)
  Receive Date: 20120831
  Receipt Date: 20120831
  Transmission Date: 20130627
  Serious: Yes (Hospitalization, Other)
  Sender: FDA-Public Use
  Company Number: 2012P1055071

PATIENT
  Age: 6 Year
  Sex: Female

DRUGS (1)
  1. MIDAZOLAM HYDROCHLORIDE [Suspect]
     Route: 042

REACTIONS (4)
  - Opisthotonus [None]
  - Dystonia [None]
  - Blood creatine phosphokinase increased [None]
  - No therapeutic response [None]
